FAERS Safety Report 13934558 (Version 1)
Quarter: 2017Q3

REPORT INFORMATION
  Report Type: Spontaneous
  Country: US (occurrence: US)
  Receive Date: 20170905
  Receipt Date: 20170905
  Transmission Date: 20171127
  Serious: No
  Sender: FDA-Public Use
  Company Number: US-TEVA-719612USA

PATIENT
  Sex: Female

DRUGS (2)
  1. APRI [Suspect]
     Active Substance: DESOGESTREL\ETHINYL ESTRADIOL
     Indication: ORAL CONTRACEPTION
     Dosage: 0.15 MG / 0.03 MG
     Route: 048
     Dates: start: 2016
  2. APRI [Suspect]
     Active Substance: DESOGESTREL\ETHINYL ESTRADIOL
     Indication: UTERINE DISORDER

REACTIONS (7)
  - Medication error [Unknown]
  - Anxiety [Unknown]
  - Confusional state [Unknown]
  - Premenstrual syndrome [Unknown]
  - Manufacturing issue [Unknown]
  - Insomnia [Unknown]
  - Dysmenorrhoea [Unknown]

NARRATIVE: CASE EVENT DATE: 201611
